FAERS Safety Report 4728189-5 (Version None)
Quarter: 2005Q3

REPORT INFORMATION
  Report Type: 
  Country: None (occurrence: None)
  Receive Date: 20050729
  Receipt Date: 20050725
  Transmission Date: 20060218
  Serious: Yes (Hospitalization)
  Sender: FDA-Public Use
  Company Number: US-BOEHRINGER INGELHEIM PHARMACEUTICALS, INC.-2005-BP-12639BP

PATIENT
  Sex: Female

DRUGS (4)
  1. SPIRIVA [Suspect]
     Indication: CHRONIC OBSTRUCTIVE PULMONARY DISEASE
     Route: 055
     Dates: start: 20050606, end: 20050722
  2. HYDROCHLOROTHIAZIDE [Suspect]
     Indication: OEDEMA PERIPHERAL
     Route: 048
     Dates: start: 20050606
  3. MICARDIS [Suspect]
     Route: 048
  4. ALBUTEROL [Concomitant]
     Dosage: 2 PUFFS QID
     Route: 055

REACTIONS (1)
  - CHEST DISCOMFORT [None]
